FAERS Safety Report 17620791 (Version 1)
Quarter: 2020Q2

REPORT INFORMATION
  Report Type: Spontaneous
  Country: US (occurrence: US)
  Receive Date: 20200403
  Receipt Date: 20200403
  Transmission Date: 20200713
  Serious: No
  Sender: FDA-Public Use
  Company Number: US-DRREDDYS-USA/USA/20/0121346

PATIENT
  Age: 61 Year
  Sex: Male
  Weight: 83.25 kg

DRUGS (1)
  1. NICOTINE. [Suspect]
     Active Substance: NICOTINE
     Indication: TOBACCO USER
     Route: 062
     Dates: start: 202003, end: 20200328

REACTIONS (3)
  - Product quality issue [Unknown]
  - Expired product administered [Recovered/Resolved]
  - Drug ineffective [Recovered/Resolved]
